FAERS Safety Report 5009804-8 (Version None)
Quarter: 2006Q2

REPORT INFORMATION
  Report Type: 
  Country: None (occurrence: None)
  Receive Date: 20060524
  Receipt Date: 20050826
  Transmission Date: 20061013
  Serious: Yes (Life-Threatening)
  Sender: FDA-Public Use
  Company Number: 200512885FR

PATIENT
  Age: 51 Year
  Sex: Male

DRUGS (6)
  1. AMARYL [Suspect]
     Indication: DIABETES MELLITUS NON-INSULIN-DEPENDENT
     Route: 048
  2. PREVISCAN 20 MG [Suspect]
     Indication: INTRACARDIAC THROMBUS
     Route: 048
     Dates: start: 20030101, end: 20050619
  3. DIAMICRON [Suspect]
     Indication: DIABETES MELLITUS NON-INSULIN-DEPENDENT
     Route: 048
  4. ALLOPURINOL [Suspect]
     Route: 048
  5. CREON [Concomitant]
     Route: 048
  6. MOPRAL [Concomitant]
     Route: 048

REACTIONS (5)
  - ANAEMIA [None]
  - CIRCULATORY COLLAPSE [None]
  - DRUG INTERACTION [None]
  - GASTROINTESTINAL HAEMORRHAGE [None]
  - SHOCK [None]
